FAERS Safety Report 4380728-2 (Version None)
Quarter: 2004Q2

REPORT INFORMATION
  Report Type: 
  Country: None (occurrence: None)
  Receive Date: 20040616
  Receipt Date: 20040602
  Transmission Date: 20050107
  Serious: Yes (Other)
  Sender: FDA-Public Use
  Company Number: D01200401961

PATIENT
  Age: 52 Year
  Sex: Male
  Weight: 72 kg

DRUGS (4)
  1. ENOXAPARIN SODIUM [Suspect]
     Indication: MYOCARDIAL INFARCTION
     Dosage: 1 MG/KG BID- SUBCUTANEOUS
     Route: 058
     Dates: start: 20040530
  2. ASPIRIN [Concomitant]
  3. ATENOLOL [Concomitant]
  4. HEPARIN SODIUM [Concomitant]

REACTIONS (1)
  - CATHETER RELATED COMPLICATION [None]
